FAERS Safety Report 12281063 (Version 1)
Quarter: 2016Q2

REPORT INFORMATION
  Report Type: Spontaneous
  Country: US (occurrence: None)
  Receive Date: 20160418
  Receipt Date: 20160418
  Transmission Date: 20160815
  Serious: No
  Sender: FDA-Public Use
  Company Number: None

PATIENT
  Age: 52 Year
  Sex: Female

DRUGS (1)
  1. LATANAPROST [Suspect]
     Active Substance: LATANOPROST
     Indication: GLAUCOMA
     Dosage: 1 GTT QHS OU OPHTHALMIC SOLUTION
     Route: 047
     Dates: start: 201603, end: 20160329

REACTIONS (2)
  - Product substitution issue [None]
  - Intraocular pressure increased [None]
